FAERS Safety Report 18169329 (Version 1)
Quarter: 2020Q3

REPORT INFORMATION
  Report Type: Other
  Country: US (occurrence: US)
  Receive Date: 20200818
  Receipt Date: 20200818
  Transmission Date: 20201104
  Serious: Yes (Other)
  Sender: FDA-Public Use
  Company Number: US-ROCHE-2658697

PATIENT
  Age: 26 Year
  Sex: Male
  Weight: 86.1 kg

DRUGS (1)
  1. EMICIZUMAB. [Suspect]
     Active Substance: EMICIZUMAB
     Indication: HAEMOPHILIA
     Dosage: ON 09/MAY/2020, HE RECEIVED MOST RECENT DOSE OF EMICIZUMAB PRIOR TO ADVERSE EVENT.
     Route: 065
     Dates: start: 20180813

REACTIONS (1)
  - Testis cancer [Not Recovered/Not Resolved]

NARRATIVE: CASE EVENT DATE: 20200513
